FAERS Safety Report 4273331-6 (Version None)
Quarter: 2004Q1

REPORT INFORMATION
  Report Type: 
  Country: None (occurrence: None)
  Receive Date: 20040119
  Receipt Date: 20040106
  Transmission Date: 20041129
  Serious: Yes (Other)
  Sender: FDA-Public Use
  Company Number: 200410133GDDC

PATIENT
  Age: 38 Year
  Sex: Male

DRUGS (8)
  1. UNKNOWN DRUG [Concomitant]
     Indication: MYOCARDIAL INFARCTION
     Dosage: DOSE: ENOX/PLACEBO BOLUS GIVEN
  2. ASPIRIN [Suspect]
     Indication: MYOCARDIAL INFARCTION
     Route: 048
     Dates: start: 20031105
  3. STREPTASE [Suspect]
     Indication: MYOCARDIAL INFARCTION
     Route: 041
     Dates: start: 20031105, end: 20031105
  4. ENOXAPARIN SODIUM [Suspect]
     Route: 058
     Dates: start: 20031110
  5. CLOPIDOGREL [Suspect]
     Indication: THROMBOSIS
     Route: 048
     Dates: start: 20031107
  6. WARFARIN SODIUM [Suspect]
     Indication: THROMBOSIS
     Route: 048
     Dates: start: 20031110
  7. SIMVASTATIN [Concomitant]
     Route: 048
     Dates: start: 20031107
  8. OMEPRAZOLE [Concomitant]
     Route: 048
     Dates: start: 20031109

REACTIONS (3)
  - ASTHENIA [None]
  - EROSIVE DUODENITIS [None]
  - GASTROINTESTINAL HAEMORRHAGE [None]
